FAERS Safety Report 21139667 (Version 1)
Quarter: 2022Q3

REPORT INFORMATION
  Report Type: Report from Study
  Country: US (occurrence: US)
  Receive Date: 20220727
  Receipt Date: 20220727
  Transmission Date: 20221026
  Serious: Yes (Death)
  Sender: FDA-Public Use
  Company Number: US-ABBVIE-22K-163-4484034-00

PATIENT
  Age: 76 Year
  Sex: Male

DRUGS (1)
  1. VENCLEXTA [Suspect]
     Active Substance: VENETOCLAX
     Indication: B-cell lymphoma
     Route: 048
     Dates: start: 20210423

REACTIONS (1)
  - Death [Fatal]

NARRATIVE: CASE EVENT DATE: 20220711
